FAERS Safety Report 7672369-6 (Version None)
Quarter: 2011Q3

REPORT INFORMATION
  Report Type: 
  Country: None (occurrence: None)
  Receive Date: 20110809
  Receipt Date: 20110719
  Transmission Date: 20111222
  Serious: No
  Sender: FDA-Public Use
  Company Number: US-BAYER-2011-025494

PATIENT
  Age: 77 Year
  Sex: Female
  Weight: 88.435 kg

DRUGS (15)
  1. MULTI-VITAMIN [Concomitant]
     Dosage: 1 PER DAY
  2. MAGNEVIST [Suspect]
     Indication: NUCLEAR MAGNETIC RESONANCE IMAGING
     Dosage: 18 ML, ONCE
     Route: 042
     Dates: start: 20110322, end: 20110322
  3. CELEXA [Concomitant]
     Dosage: 10 MG, QD
  4. OXYBUTYNIN [Concomitant]
     Dosage: 5 MG, BID
  5. FISH OIL [Concomitant]
     Dosage: 1000 MG, QD
  6. ASCORBIC ACID [Concomitant]
     Dosage: 500 MG, QD
  7. ASPIRIN [Concomitant]
     Dosage: 81 MG, QD
  8. METOPROLOL TARTRATE [Concomitant]
     Dosage: 50 MG, QD
  9. BIOTIN [Concomitant]
     Dosage: 1000 MG, QD
  10. GLUCOSAMINE [Concomitant]
     Dosage: UNK UNK, BID
  11. LOVASTATIN [Concomitant]
     Dosage: 20 MG, QD
  12. PRILOSEC [Concomitant]
     Dosage: 20 MG, QD
  13. VITAMIN B-12 [Concomitant]
     Dosage: 1000 MG, QD
  14. LISINOPRIL [Concomitant]
     Dosage: 10 MG, QD
  15. CALCIUM CARBONATE [Concomitant]
     Dosage: 1200 + D, QD

REACTIONS (3)
  - INJECTION SITE OEDEMA [None]
  - INJECTION SITE PRURITUS [None]
  - ERYTHEMA [None]
